FAERS Safety Report 19932969 (Version 3)
Quarter: 2022Q1

REPORT INFORMATION
  Report Type: Other
  Country: US (occurrence: None)
  Receive Date: 20211008
  Receipt Date: 20220302
  Transmission Date: 20220423
  Serious: Yes (Hospitalization)
  Sender: FDA-Public Use
  Company Number: US-ROCHE-2387795

PATIENT
  Age: 70 Year
  Sex: Female
  Weight: 49.940 kg

DRUGS (9)
  1. OCREVUS [Suspect]
     Active Substance: OCRELIZUMAB
     Indication: Primary progressive multiple sclerosis
     Dosage: HALF DOSES ;ONGOING: NO?SECOND HALF DOSE ON 02/AUG/2017
     Route: 042
     Dates: start: 20170717
  2. OCREVUS [Suspect]
     Active Substance: OCRELIZUMAB
     Dosage: FULL DOSES ;ONGOING: YES
     Route: 042
     Dates: start: 20180202
  3. OCREVUS [Suspect]
     Active Substance: OCRELIZUMAB
     Dosage: FULL DOSES ;ONGOING: YES
     Route: 042
     Dates: start: 20180802
  4. OCREVUS [Suspect]
     Active Substance: OCRELIZUMAB
     Dosage: FULL DOSES ;ONGOING: YES
     Route: 042
     Dates: start: 20190108
  5. OCREVUS [Suspect]
     Active Substance: OCRELIZUMAB
     Dosage: FULL DOSES ;ONGOING: YES
     Route: 042
     Dates: start: 20190802
  6. GABAPENTIN [Concomitant]
     Active Substance: GABAPENTIN
     Dates: start: 2000
  7. TRICOR [Concomitant]
     Active Substance: FENOFIBRATE
     Indication: Blood cholesterol increased
     Dates: start: 2000
  8. TYLENOL [Concomitant]
     Active Substance: ACETAMINOPHEN
  9. BENADRYL [Concomitant]
     Active Substance: DIPHENHYDRAMINE HYDROCHLORIDE

REACTIONS (15)
  - Relapsing multiple sclerosis [Recovered/Resolved]
  - Haemoglobin decreased [Recovered/Resolved]
  - Dehydration [Recovered/Resolved]
  - Malnutrition [Recovered/Resolved]
  - Asthenia [Recovered/Resolved]
  - Blood pressure decreased [Recovered/Resolved]
  - Fall [Unknown]
  - Off label use [Unknown]
  - Urinary tract infection [Recovered/Resolved]
  - Urinary incontinence [Recovered/Resolved]
  - Pyrexia [Unknown]
  - Blood pressure increased [Unknown]
  - Hypotension [Unknown]
  - Jaw disorder [Recovered/Resolved]
  - Loss of control of legs [Recovering/Resolving]

NARRATIVE: CASE EVENT DATE: 20190601
